FAERS Safety Report 23788876 (Version 3)
Quarter: 2024Q2

REPORT INFORMATION
  Report Type: Spontaneous
  Country: US (occurrence: US)
  Receive Date: 20240426
  Receipt Date: 20240628
  Transmission Date: 20240716
  Serious: Yes (Other)
  Sender: FDA-Public Use
  Company Number: US-Calliditas-2024CAL00613

PATIENT
  Age: 31 Year
  Sex: Male
  Weight: 93.9 kg

DRUGS (1)
  1. TARPEYO [Suspect]
     Active Substance: BUDESONIDE
     Indication: IgA nephropathy
     Dosage: 16MG (4MG CAPSULES) ONCE DAILY
     Route: 048
     Dates: start: 20240320

REACTIONS (6)
  - Product administration error [Unknown]
  - Muscle rupture [Unknown]
  - Herpes zoster [Unknown]
  - Blood pressure increased [Recovering/Resolving]
  - Swelling face [Unknown]
  - Fatigue [Unknown]
